FAERS Safety Report 4538614-0 (Version None)
Quarter: 2004Q4

REPORT INFORMATION
  Report Type: 
  Country: None (occurrence: None)
  Receive Date: 20041227
  Receipt Date: 20041216
  Transmission Date: 20050328
  Serious: Yes (Other)
  Sender: FDA-Public Use
  Company Number: DE-JNJFOC-20041204840

PATIENT
  Sex: Male

DRUGS (1)
  1. ITRACOL [Suspect]
     Indication: DRUG USE FOR UNKNOWN INDICATION
     Route: 049

REACTIONS (4)
  - ASTHENIA [None]
  - NERVE COMPRESSION [None]
  - PAIN IN EXTREMITY [None]
  - PARAESTHESIA [None]
